FAERS Safety Report 8304239-4 (Version None)
Quarter: 2012Q2

REPORT INFORMATION
  Report Type: 
  Country: None (occurrence: None)
  Receive Date: 20120423
  Receipt Date: 20120413
  Transmission Date: 20120825
  Serious: No
  Sender: FDA-Public Use
  Company Number: US-ASTRAZENECA-2011SE49112

PATIENT
  Age: 72 Year
  Sex: Female

DRUGS (4)
  1. SYMBICORT [Suspect]
     Route: 055
  2. TAMOXIFEN CITRATE [Concomitant]
     Dates: start: 19990101, end: 20080101
  3. NEXIUM [Suspect]
     Route: 048
  4. ARIMIDEX [Suspect]
     Route: 048

REACTIONS (3)
  - PNEUMONIA [None]
  - CANDIDIASIS [None]
  - CHRONIC OBSTRUCTIVE PULMONARY DISEASE [None]
